FAERS Safety Report 15824218 (Version 2)
Quarter: 2019Q1

REPORT INFORMATION
  Report Type: Spontaneous
  Country: US (occurrence: US)
  Receive Date: 20190115
  Receipt Date: 20190129
  Transmission Date: 20190417
  Serious: Yes (Hospitalization)
  Sender: FDA-Public Use
  Company Number: US-ROCHE-2243592

PATIENT
  Age: 39 Year
  Sex: Female

DRUGS (18)
  1. OCREVUS [Suspect]
     Active Substance: OCRELIZUMAB
     Indication: RELAPSING-REMITTING MULTIPLE SCLEROSIS
     Route: 065
     Dates: start: 20180112
  2. OCREVUS [Suspect]
     Active Substance: OCRELIZUMAB
     Dosage: SECOND DOSE
     Route: 065
     Dates: start: 20180126
  3. DIFLUCAN [Concomitant]
     Active Substance: FLUCONAZOLE
     Dosage: ONGOING: UNKNOWN
     Route: 065
  4. LIDODERM [Concomitant]
     Active Substance: LIDOCAINE
     Dosage: ONGOING: UNKNOWN
     Route: 065
  5. ULTRAM [Concomitant]
     Active Substance: TRAMADOL HYDROCHLORIDE
  6. ZOFRAN [Concomitant]
     Active Substance: ONDANSETRON HYDROCHLORIDE
     Dosage: ONGOING: UNKNOWN
     Route: 065
  7. OCREVUS [Suspect]
     Active Substance: OCRELIZUMAB
     Dosage: THIRD DOSE
     Route: 065
     Dates: start: 20180727
  8. ALBUTEROL. [Concomitant]
     Active Substance: ALBUTEROL
     Dosage: ONGOING: UNKNOWN
     Route: 065
  9. CRANBERRY. [Concomitant]
     Active Substance: CRANBERRY
     Dosage: ONGOING: UNKNOWN
     Route: 065
  10. ALLEGRA [Concomitant]
     Active Substance: FEXOFENADINE HYDROCHLORIDE
     Dosage: ONGOING: UNKNOWN
     Route: 065
  11. DEPO-PROVERA [Concomitant]
     Active Substance: MEDROXYPROGESTERONE ACETATE
     Dosage: ONGOING: UNKNOWN
     Route: 065
  12. SINGULAIR [Concomitant]
     Active Substance: MONTELUKAST SODIUM
     Dosage: ONGOING: UNKNOWN
     Route: 065
  13. NIZORAL [Concomitant]
     Active Substance: KETOCONAZOLE
     Dosage: ONGOING: UNKNOWN
     Route: 065
  14. BACLOFEN. [Concomitant]
     Active Substance: BACLOFEN
     Dosage: ONGOING: UNKNOWN
     Route: 065
  15. TEGRETOL [Concomitant]
     Active Substance: CARBAMAZEPINE
     Dosage: ONGOING: UNKNOWN
     Route: 065
  16. COLACE [Concomitant]
     Active Substance: DOCUSATE SODIUM
     Dosage: ONGOING: UNKNOWN
     Route: 065
  17. VITAMIN D3 [Concomitant]
     Active Substance: CHOLECALCIFEROL
     Dosage: ONGOING: UNKNOWN
     Route: 065
  18. AMARYL [Concomitant]
     Active Substance: GLIMEPIRIDE
     Dosage: ONGOING: UNKNOWN
     Route: 065

REACTIONS (1)
  - Pneumonia [Unknown]

NARRATIVE: CASE EVENT DATE: 20181209
